FAERS Safety Report 19484099 (Version 2)
Quarter: 2021Q3

REPORT INFORMATION
  Report Type: Spontaneous
  Country: US (occurrence: US)
  Receive Date: 20210702
  Receipt Date: 20210806
  Transmission Date: 20211014
  Serious: Yes (Hospitalization)
  Sender: FDA-Public Use
  Company Number: US-ASTRAZENECA-2021A569883

PATIENT
  Age: 67 Year
  Sex: Male
  Weight: 81.6 kg

DRUGS (1)
  1. SYMBICORT [Suspect]
     Active Substance: BUDESONIDE\FORMOTEROL FUMARATE DIHYDRATE
     Indication: CHRONIC OBSTRUCTIVE PULMONARY DISEASE
     Dosage: 160/ 4.5 UG, 2 PUFF, TWO TIMES A DAY
     Route: 055

REACTIONS (8)
  - Drug dose omission by device [Not Recovered/Not Resolved]
  - Device malfunction [Unknown]
  - Peripheral swelling [Recovered/Resolved]
  - Blood count abnormal [Recovered/Resolved]
  - Wrong technique in device usage process [Unknown]
  - Pneumonia [Recovered/Resolved]
  - Haemorrhage [Recovered/Resolved]
  - Dyspnoea [Not Recovered/Not Resolved]

NARRATIVE: CASE EVENT DATE: 2020
